FAERS Safety Report 21665330 (Version 5)
Quarter: 2023Q1

REPORT INFORMATION
  Report Type: Report from Study
  Country: US (occurrence: US)
  Receive Date: 20221201
  Receipt Date: 20230325
  Transmission Date: 20230418
  Serious: Yes (Other)
  Sender: FDA-Public Use
  Company Number: US-002147023-NVSC2022US265769

PATIENT
  Sex: Female

DRUGS (2)
  1. KESIMPTA [Suspect]
     Active Substance: OFATUMUMAB
     Indication: Multiple sclerosis
     Dosage: UNK
     Route: 058
     Dates: start: 20210909
  2. KESIMPTA [Suspect]
     Active Substance: OFATUMUMAB
     Indication: Relapsing-remitting multiple sclerosis

REACTIONS (7)
  - Multiple sclerosis relapse [Unknown]
  - Arthralgia [Unknown]
  - Respiratory syncytial virus infection [Unknown]
  - Fall [Unknown]
  - Stress [Unknown]
  - Hypoaesthesia [Unknown]
  - Headache [Unknown]
